FAERS Safety Report 8224509-8 (Version None)
Quarter: 2012Q1

REPORT INFORMATION
  Report Type: 
  Country: None (occurrence: None)
  Receive Date: 20120320
  Receipt Date: 20120320
  Transmission Date: 20120608
  Serious: No
  Sender: FDA-Public Use
  Company Number: None

PATIENT
  Sex: Female
  Weight: 87.2 kg

DRUGS (3)
  1. TAXOL [Suspect]
     Dosage: 400 MG
  2. CARBOPLATIN [Suspect]
     Dosage: 900 MG
  3. BEVACIZUMAB (RHUMAB VEGF) [Suspect]
     Dosage: 1350 MG

REACTIONS (2)
  - NEUTROPHIL COUNT DECREASED [None]
  - OESOPHAGEAL STENOSIS [None]
